FAERS Safety Report 10468065 (Version 1)
Quarter: 2014Q3

REPORT INFORMATION
  Report Type: Spontaneous
  Country: BR (occurrence: BR)
  Receive Date: 20140922
  Receipt Date: 20140922
  Transmission Date: 20150326
  Serious: Yes (Other)
  Sender: FDA-Public Use
  Company Number: BR-PFIZER INC-2014257335

PATIENT
  Age: 5 Year
  Sex: Female
  Weight: 18.5 kg

DRUGS (1)
  1. CARDURAN XL [Suspect]
     Active Substance: DOXAZOSIN MESYLATE
     Indication: HYPERTENSION
     Dosage: 1 MG, 1X/DAY
     Route: 048

REACTIONS (5)
  - Epilepsy [Unknown]
  - Wrong technique in drug usage process [Unknown]
  - Budd-Chiari syndrome [Unknown]
  - Urinary tract infection [Unknown]
  - Hypothyroidism [Unknown]
